FAERS Safety Report 14203568 (Version 1)
Quarter: 2017Q4

REPORT INFORMATION
  Report Type: Spontaneous
  Country: FR (occurrence: FR)
  Receive Date: 20171120
  Receipt Date: 20171120
  Transmission Date: 20180321
  Serious: Yes (Other)
  Sender: FDA-Public Use
  Company Number: FR-CIPLA LTD.-2017FR20437

PATIENT

DRUGS (10)
  1. DOCETAXEL. [Suspect]
     Active Substance: DOCETAXEL
     Indication: DESMOPLASTIC SMALL ROUND CELL TUMOUR
     Dosage: UNK
     Route: 065
  2. SORAFENIB [Suspect]
     Active Substance: SORAFENIB
     Indication: DESMOPLASTIC SMALL ROUND CELL TUMOUR
     Dosage: UNK
     Route: 065
  3. IFOSFAMIDE. [Suspect]
     Active Substance: IFOSFAMIDE
     Indication: DESMOPLASTIC SMALL ROUND CELL TUMOUR
     Dosage: UNK
     Route: 065
  4. ADRIAMYCIN [Suspect]
     Active Substance: DOXORUBICIN HYDROCHLORIDE
     Indication: DESMOPLASTIC SMALL ROUND CELL TUMOUR
     Dosage: UNK
     Route: 065
  5. GEMCITABINE [Suspect]
     Active Substance: GEMCITABINE\GEMCITABINE HYDROCHLORIDE
     Indication: DESMOPLASTIC SMALL ROUND CELL TUMOUR
     Dosage: UNK
     Route: 065
  6. MESNA. [Suspect]
     Active Substance: MESNA
     Indication: DESMOPLASTIC SMALL ROUND CELL TUMOUR
     Dosage: UNK
     Route: 065
  7. IRINOTECAN [Suspect]
     Active Substance: IRINOTECAN
     Indication: DESMOPLASTIC SMALL ROUND CELL TUMOUR
     Dosage: UNK
     Route: 065
  8. TRABECTEDINE [Suspect]
     Active Substance: TRABECTEDIN
     Indication: DESMOPLASTIC SMALL ROUND CELL TUMOUR
     Dosage: UNK
     Route: 065
  9. CISPLATIN. [Suspect]
     Active Substance: CISPLATIN
     Indication: DESMOPLASTIC SMALL ROUND CELL TUMOUR
     Dosage: UNK
     Route: 065
  10. ADRIBLASTINE [Suspect]
     Active Substance: DOXORUBICIN
     Indication: DESMOPLASTIC SMALL ROUND CELL TUMOUR
     Dosage: UNK
     Route: 065

REACTIONS (3)
  - Abdominal pain [Unknown]
  - Desmoplastic small round cell tumour [Unknown]
  - Disease progression [Unknown]
